FAERS Safety Report 10545920 (Version 1)
Quarter: 2014Q4

REPORT INFORMATION
  Report Type: Spontaneous
  Country: US (occurrence: US)
  Receive Date: 20141027
  Receipt Date: 20141027
  Transmission Date: 20150529
  Serious: No
  Sender: FDA-Public Use
  Company Number: US-ABBVIE-13P-163-1176873-00

PATIENT
  Sex: Female

DRUGS (3)
  1. LUPRON [Suspect]
     Active Substance: LEUPROLIDE ACETATE
     Indication: ENDOMETRIOSIS
     Dosage: 1 MONTH
  2. LUPRON [Suspect]
     Active Substance: LEUPROLIDE ACETATE
     Dosage: TWO-MONTH SHOT
  3. LUPRON [Suspect]
     Active Substance: LEUPROLIDE ACETATE

REACTIONS (3)
  - Adnexa uteri pain [Unknown]
  - Drug ineffective [Unknown]
  - Medication error [Unknown]
